FAERS Safety Report 8063443-3 (Version None)
Quarter: 2012Q1

REPORT INFORMATION
  Report Type: 
  Country: None (occurrence: None)
  Receive Date: 20120123
  Receipt Date: 20120117
  Transmission Date: 20120608
  Serious: No
  Sender: FDA-Public Use
  Company Number: US-PFIZER INC-2012013903

PATIENT
  Sex: Female

DRUGS (2)
  1. LYRICA [Suspect]
     Indication: FIBROMYALGIA
     Dosage: 25 MG, 4X/DAY
  2. LYRICA [Suspect]
     Indication: EPSTEIN-BARR VIRUS INFECTION
     Dosage: 25 MG, 5X/DAY

REACTIONS (2)
  - MUSCLE TWITCHING [None]
  - VISION BLURRED [None]
